FAERS Safety Report 12805160 (Version 5)
Quarter: 2018Q1

REPORT INFORMATION
  Report Type: Report from Study
  Country: BE (occurrence: BE)
  Receive Date: 20161004
  Receipt Date: 20180108
  Transmission Date: 20180508
  Serious: Yes (Death, Hospitalization, Disabling, Other)
  Sender: FDA-Public Use
  Company Number: BE-BRISTOL-MYERS SQUIBB COMPANY-BMS-2016-074324

PATIENT
  Age: 62 Year
  Sex: Female

DRUGS (5)
  1. KEPPRA [Concomitant]
     Active Substance: LEVETIRACETAM
     Indication: PRODUCT USED FOR UNKNOWN INDICATION
     Dosage: 1 DF, UNK
     Route: 065
  2. NIVOLUMAB [Suspect]
     Active Substance: NIVOLUMAB
     Indication: NON-SMALL CELL LUNG CANCER
     Dosage: 3 MG/KG, 2 TIMES/WK
     Route: 042
     Dates: start: 20160320, end: 20160902
  3. L THYROXIN [Concomitant]
     Active Substance: LEVOTHYROXINE SODIUM
     Indication: HYPOTHYROIDISM
     Dosage: 1 DF, UNK
     Route: 048
  4. METFORMIN HYDROCHLORIDE. [Concomitant]
     Active Substance: METFORMIN HYDROCHLORIDE
     Indication: DIABETES MELLITUS
     Dosage: 1 DF, UNK
     Route: 048
  5. PANTOPRAZOLE [Concomitant]
     Active Substance: PANTOPRAZOLE
     Indication: DYSPEPSIA
     Dosage: 1 DF, UNK
     Route: 048

REACTIONS (8)
  - Brain injury [Recovered/Resolved with Sequelae]
  - Encephalitis [Fatal]
  - Confusional state [Not Recovered/Not Resolved]
  - General physical health deterioration [Unknown]
  - Dementia [Not Recovered/Not Resolved]
  - Asthenia [Unknown]
  - Therapeutic response decreased [Unknown]
  - Radiotherapy [Recovered/Resolved with Sequelae]

NARRATIVE: CASE EVENT DATE: 20160902
